FAERS Safety Report 5693205-3 (Version None)
Quarter: 2008Q2

REPORT INFORMATION
  Report Type: 
  Country: None (occurrence: None)
  Receive Date: 20080403
  Receipt Date: 20080328
  Transmission Date: 20081010
  Serious: Yes (Death)
  Sender: FDA-Public Use
  Company Number: US-BAXTER-2008BH002858

PATIENT
  Age: 53 Year
  Sex: Male

DRUGS (3)
  1. HEPARIN SODIUM [Suspect]
     Indication: ATRIAL FIBRILLATION
     Route: 042
     Dates: start: 20080215, end: 20080215
  2. HOSPIRA BRANDED HEPARIN INFUSION [Concomitant]
     Indication: ATRIAL FIBRILLATION
     Dosage: DOSE UNIT:UNKNOWN
     Route: 042
     Dates: start: 20080215
  3. LOPRESSOR [Concomitant]
     Indication: ATRIAL FIBRILLATION
     Dosage: DOSE UNIT:UNKNOWN
     Route: 065
     Dates: start: 20080215, end: 20080215

REACTIONS (2)
  - CARDIOGENIC SHOCK [None]
  - HYPOTENSION [None]
